FAERS Safety Report 5938328-6 (Version None)
Quarter: 2008Q4

REPORT INFORMATION
  Report Type: 
  Country: None (occurrence: None)
  Receive Date: 20081103
  Receipt Date: 20081023
  Transmission Date: 20090506
  Serious: Yes (Hospitalization)
  Sender: FDA-Public Use
  Company Number: IN-ELI_LILLY_AND_COMPANY-IN200805005169

PATIENT
  Sex: Male
  Weight: 38 kg

DRUGS (28)
  1. TERIPARATIDE [Suspect]
     Indication: SPINAL FRACTURE
     Dosage: 20 UG, DAILY (1/D)
     Route: 058
     Dates: start: 20080219
  2. TIOTROPIUM BROMIDE [Concomitant]
     Indication: CHRONIC OBSTRUCTIVE PULMONARY DISEASE
     Dosage: 2 D/F, DAILY (1/D)
     Dates: start: 20071202
  3. FORMOTEROL FUMARATE [Concomitant]
     Indication: CHRONIC OBSTRUCTIVE PULMONARY DISEASE
     Dosage: 2 D/F, DAILY (1/D)
     Dates: start: 20071202
  4. FLUTICASONE PROPIONATE [Concomitant]
     Indication: CHRONIC OBSTRUCTIVE PULMONARY DISEASE
     Dosage: 2 D/F (125 MCG), UNKNOWN
     Route: 055
     Dates: start: 20071201
  5. ALPHA D3 [Concomitant]
     Indication: OSTEOPOROSIS
     Dosage: 1 UG, UNKNOWN
     Dates: start: 20080305
  6. ALPHA D3 [Concomitant]
     Dosage: 1 UG, DAILY (1/D)
     Dates: start: 20080421
  7. SHELCAL [Concomitant]
     Dosage: 500 MG, DAILY (1/D)
     Dates: start: 20080305
  8. CALCITONIN-SALMON [Concomitant]
     Dosage: 1 D/F, EACH NOSTRIL 2/D
     Dates: start: 20080305
  9. PANTOPRAZOLE SODIUM [Concomitant]
     Dosage: 40 MG, 2/D
     Dates: start: 20071201
  10. CLOTRIMAZOLE [Concomitant]
     Dosage: 1 D/F, 2/D
     Dates: start: 20080218
  11. METROGYL [Concomitant]
     Dosage: UNK, 2/D
     Dates: start: 20080305
  12. GENTEAL [Concomitant]
     Dosage: UNK, 2/D
     Dates: start: 20080305
  13. REFRESH [Concomitant]
     Dosage: 1 D/F, 4-HOURLY
     Dates: start: 20080305
  14. DERIPHYLLIN [Concomitant]
     Dosage: 300 MG, 2/D
     Dates: start: 20080305
  15. PULMOCARE [Concomitant]
     Indication: MEDICAL DIET
     Dosage: 30 G, 2/D
     Dates: start: 20080305
  16. VITAMIN B COMPLEX CAP [Concomitant]
     Dosage: 1 D/F, 3/D
     Dates: start: 20080305
  17. VITAMIN B COMPLEX CAP [Concomitant]
     Dosage: 1 D/F, DAILY (1/D)
     Dates: start: 20080421
  18. PROCHLORPERAZINE [Concomitant]
     Dosage: 0.5 D/F, 2/D
     Dates: start: 20080305
  19. NEUROBION /00176001/ [Concomitant]
     Indication: VITAMIN SUPPLEMENTATION
     Dosage: 1 D/F, UNKNOWN
     Route: 030
     Dates: start: 20080305
  20. NEUROBION /00176001/ [Concomitant]
     Dosage: 1 D/F, QOD
     Route: 030
     Dates: start: 20080421
  21. ETORICOXIB [Concomitant]
     Dosage: UNK, 2/D
     Dates: start: 20080305
  22. LASILACTONE [Concomitant]
     Dosage: 50 MG, QOD
     Dates: start: 20080305
  23. DIMETICONE [Concomitant]
     Dosage: UNK, 3/D
     Dates: start: 20080421
  24. PANCREATIN TRIPLE STRENGTH CAP [Concomitant]
     Dosage: UNK, 3/D
     Dates: start: 20080421
  25. TEGASEROD [Concomitant]
     Dosage: 6 MG, 2/D
     Route: 048
     Dates: start: 20080414
  26. DIOCTYL SODIUM SULPHOSUCCINATE [Concomitant]
     Indication: LAXATIVE SUPPORTIVE CARE
     Dosage: 200 MG, 3/D
     Dates: start: 20080414
  27. SODIUM PICOSULFATE [Concomitant]
     Indication: LAXATIVE SUPPORTIVE CARE
     Dosage: 10 MG, AT BED TIME
     Dates: start: 20080414
  28. DOMSTAL [Concomitant]
     Dosage: 10 MG, UNKNOWN
     Dates: start: 20080421

REACTIONS (4)
  - ABDOMINAL DISCOMFORT [None]
  - ABDOMINAL INFECTION [None]
  - DYSPNOEA [None]
  - PAIN IN EXTREMITY [None]
